FAERS Safety Report 10570087 (Version 1)
Quarter: 2014Q4

REPORT INFORMATION
  Report Type: Spontaneous
  Country: None (occurrence: None)
  Receive Date: 20141106
  Receipt Date: 20141106
  Transmission Date: 20150529
  Serious: Yes (Disabling)
  Sender: FDA-Public Use
  Company Number: None

PATIENT
  Age: 30 Year
  Sex: Male
  Weight: 81.65 kg

DRUGS (1)
  1. CIPROFLOXACIN. [Suspect]
     Active Substance: CIPROFLOXACIN
     Indication: GASTROINTESTINAL INFECTION
     Dosage: 1 PILL TWICE DAILY TAKEN BY MOUTH
     Route: 048
     Dates: start: 20140916, end: 20140923

REACTIONS (8)
  - Depression [None]
  - Fatigue [None]
  - Hypoaesthesia [None]
  - Feeling abnormal [None]
  - Rash [None]
  - Paraesthesia [None]
  - Irritable bowel syndrome [None]
  - Headache [None]

NARRATIVE: CASE EVENT DATE: 20140916
